FAERS Safety Report 25381088 (Version 1)
Quarter: 2025Q2

REPORT INFORMATION
  Report Type: Spontaneous
  Country: AT (occurrence: AT)
  Receive Date: 20250530
  Receipt Date: 20250530
  Transmission Date: 20250717
  Serious: Yes (Death, Hospitalization)
  Sender: ELI LILLY AND COMPANY
  Company Number: AT-009507513-2286997

PATIENT
  Age: 44 Year
  Sex: Female

DRUGS (14)
  1. PEMETREXED [Suspect]
     Active Substance: PEMETREXED
     Indication: Non-small cell lung cancer
     Route: 065
     Dates: start: 202407
  2. KEYTRUDA [Suspect]
     Active Substance: PEMBROLIZUMAB
     Indication: Non-small cell lung cancer
     Dosage: 200 MG, 3/W
     Route: 065
     Dates: start: 20240702, end: 20240702
  3. KEYTRUDA [Suspect]
     Active Substance: PEMBROLIZUMAB
     Dosage: 200 MG, 3/W
     Route: 065
     Dates: start: 20240725, end: 20240725
  4. KEYTRUDA [Suspect]
     Active Substance: PEMBROLIZUMAB
     Dosage: 200 MG, 3/W
     Route: 065
     Dates: start: 20240816, end: 20240816
  5. KEYTRUDA [Suspect]
     Active Substance: PEMBROLIZUMAB
     Dosage: 200 MG, 3/W
     Route: 065
     Dates: start: 20240905, end: 20240905
  6. KEYTRUDA [Suspect]
     Active Substance: PEMBROLIZUMAB
     Dosage: 200 MG, 3/W
     Route: 065
     Dates: start: 20240930, end: 20240930
  7. KEYTRUDA [Suspect]
     Active Substance: PEMBROLIZUMAB
     Dosage: 200 MG, 3/W
     Route: 065
     Dates: start: 20241021, end: 20241021
  8. KEYTRUDA [Suspect]
     Active Substance: PEMBROLIZUMAB
     Dosage: 200 MG, 3/W
     Route: 065
     Dates: start: 20241111, end: 20241111
  9. KEYTRUDA [Suspect]
     Active Substance: PEMBROLIZUMAB
     Dosage: 200 MG, 3/W
     Route: 065
     Dates: start: 20241202, end: 20241202
  10. KEYTRUDA [Suspect]
     Active Substance: PEMBROLIZUMAB
     Dosage: 200 MG, 3/W
     Route: 065
     Dates: start: 20241223, end: 20241223
  11. KEYTRUDA [Suspect]
     Active Substance: PEMBROLIZUMAB
     Dosage: 200 MG, 3/W
     Route: 065
     Dates: start: 20250113, end: 20250113
  12. KEYTRUDA [Suspect]
     Active Substance: PEMBROLIZUMAB
     Dosage: 200 MG, 3/W
     Route: 065
     Dates: start: 20250224, end: 20250224
  13. KEYTRUDA [Suspect]
     Active Substance: PEMBROLIZUMAB
     Dosage: 200 MG, 3/W
     Route: 065
     Dates: start: 20250317, end: 20250317
  14. CARBOPLATIN [Suspect]
     Active Substance: CARBOPLATIN
     Indication: Non-small cell lung cancer
     Route: 065
     Dates: start: 202407

REACTIONS (1)
  - Immune-mediated hepatitis [Fatal]

NARRATIVE: CASE EVENT DATE: 20250407
